FAERS Safety Report 23956531 (Version 1)
Quarter: 2024Q2

REPORT INFORMATION
  Report Type: Spontaneous
  Country: AU (occurrence: AU)
  Receive Date: 20240610
  Receipt Date: 20240610
  Transmission Date: 20240716
  Serious: Yes (Other)
  Sender: FDA-Public Use
  Company Number: AU-PFIZER INC-202400188612

PATIENT
  Sex: Female

DRUGS (2)
  1. PROVERA [Suspect]
     Active Substance: MEDROXYPROGESTERONE ACETATE
     Indication: Hormone replacement therapy
     Dosage: 10 MG, DAILY
  2. PROVERA [Suspect]
     Active Substance: MEDROXYPROGESTERONE ACETATE
     Dosage: 5 MG, DAILY

REACTIONS (1)
  - Brain neoplasm [Unknown]
